FAERS Safety Report 14967806 (Version 2)
Quarter: 2018Q3

REPORT INFORMATION
  Report Type: Spontaneous
  Country: US (occurrence: US)
  Receive Date: 20180604
  Receipt Date: 20180704
  Transmission Date: 20181010
  Serious: No
  Sender: FDA-Public Use
  Company Number: US-PFIZER INC-2018225188

PATIENT
  Age: 36 Year
  Sex: Female

DRUGS (1)
  1. XELJANZ XR [Suspect]
     Active Substance: TOFACITINIB CITRATE
     Indication: RHEUMATOID ARTHRITIS
     Dosage: 11 MG, 1X/DAY
     Route: 048

REACTIONS (8)
  - Muscular weakness [Unknown]
  - Hypoaesthesia [Unknown]
  - Fatigue [Unknown]
  - Myalgia [Unknown]
  - Paraesthesia [Unknown]
  - Dry eye [Unknown]
  - Arthralgia [Unknown]
  - Joint swelling [Unknown]
